FAERS Safety Report 7331585-3 (Version None)
Quarter: 2011Q1

REPORT INFORMATION
  Report Type: 
  Country: None (occurrence: None)
  Receive Date: 20110304
  Receipt Date: 20101208
  Transmission Date: 20110831
  Serious: No
  Sender: FDA-Public Use
  Company Number: A0898594A

PATIENT
  Sex: Male

DRUGS (6)
  1. OMEPRAZOLE [Concomitant]
  2. LAMICTAL [Suspect]
     Indication: BIPOLAR DISORDER
     Dosage: 25MG PER DAY
     Route: 048
     Dates: start: 20101205
  3. FEXOFENADINE [Concomitant]
  4. LITHIUM [Concomitant]
  5. LISINOPRIL [Concomitant]
  6. FISH OIL [Concomitant]

REACTIONS (2)
  - SOMNOLENCE [None]
  - FATIGUE [None]
